FAERS Safety Report 8552943-5 (Version None)
Quarter: 2012Q3

REPORT INFORMATION
  Report Type: 
  Country: None (occurrence: None)
  Receive Date: 20120731
  Receipt Date: 20120726
  Transmission Date: 20120928
  Serious: Yes (Hospitalization, Other)
  Sender: FDA-Public Use
  Company Number: PHHY2012BR065133

PATIENT
  Sex: Female

DRUGS (4)
  1. METFORMIN HYDROCHLORIDE [Concomitant]
     Indication: DIABETES MELLITUS
     Dosage: 2 DF (850MG) DAILY
     Route: 048
     Dates: start: 20070101
  2. ATENOLOL [Concomitant]
     Indication: HYPERTENSION
     Dosage: 50 MG, DAILY
     Route: 048
     Dates: start: 20070101
  3. SIMVASTATIN [Concomitant]
     Indication: BLOOD CHOLESTEROL INCREASED
     Dosage: 20 MG, DAILY
     Route: 048
     Dates: start: 20070101
  4. DIOVAN HCT [Suspect]
     Indication: HYPERTENSION
     Dosage: 1 DF (80/12.5MG) IN THE MORNING
     Route: 048
     Dates: start: 19980101

REACTIONS (7)
  - NAUSEA [None]
  - SWELLING FACE [None]
  - GASTRIC DISORDER [None]
  - FALL [None]
  - SYNCOPE [None]
  - LIP AND/OR ORAL CAVITY CANCER [None]
  - SILENT MYOCARDIAL INFARCTION [None]
